FAERS Safety Report 14626186 (Version 1)
Quarter: 2018Q1

REPORT INFORMATION
  Report Type: Spontaneous
  Country: GR (occurrence: GR)
  Receive Date: 20180312
  Receipt Date: 20180312
  Transmission Date: 20180509
  Serious: Yes (Other)
  Sender: FDA-Public Use
  Company Number: GR-TEVA-2018-GR-867514

PATIENT
  Age: 57 Year
  Sex: Female

DRUGS (9)
  1. INFLUXIMAB [Suspect]
     Active Substance: INFLIXIMAB
     Indication: JOINT EFFUSION
     Route: 065
     Dates: start: 20160801
  2. INFLUXIMAB [Suspect]
     Active Substance: INFLIXIMAB
     Dosage: ALSO USED PRIOR TO THE AES
     Route: 065
  3. JANUMET [Suspect]
     Active Substance: METFORMIN HYDROCHLORIDE\SITAGLIPTIN PHOSPHATE
     Indication: JOINT EFFUSION
     Route: 065
     Dates: start: 20160101
  4. FOSAVANCE [Suspect]
     Active Substance: ALENDRONATE SODIUM\CHOLECALCIFEROL
     Indication: JOINT EFFUSION
     Dosage: 5600 IU
     Route: 065
     Dates: start: 20160101
  5. SALOPYRINE [Suspect]
     Active Substance: SULFASALAZINE
     Indication: JOINT EFFUSION
     Dosage: 3 G, 2X3
     Route: 065
     Dates: start: 20160801
  6. SALOPYRINE [Suspect]
     Active Substance: SULFASALAZINE
     Dosage: ALSO USED PRIOR TO THE AES
     Route: 065
  7. ADALIMUMAB [Suspect]
     Active Substance: ADALIMUMAB
     Indication: JOINT EFFUSION
     Route: 065
     Dates: start: 20160101
  8. METHOTREXATE SODIUM. [Suspect]
     Active Substance: METHOTREXATE SODIUM
     Indication: JOINT EFFUSION
     Route: 065
     Dates: start: 20160101
  9. PREZOLON [Suspect]
     Active Substance: PREDNISOLONE
     Indication: JOINT EFFUSION
     Dosage: 10 MILLIGRAM DAILY;
     Route: 065
     Dates: start: 20160101

REACTIONS (8)
  - Bone marrow oedema [Unknown]
  - Sacroiliitis [Unknown]
  - Urinary tract infection [Unknown]
  - Pain [Unknown]
  - Osteoporotic fracture [Unknown]
  - Fall [Unknown]
  - Immobile [Unknown]
  - Joint effusion [Unknown]

NARRATIVE: CASE EVENT DATE: 20160701
